FAERS Safety Report 6271680-3 (Version None)
Quarter: 2009Q3

REPORT INFORMATION
  Report Type: 
  Country: None (occurrence: None)
  Receive Date: 20090716
  Receipt Date: 20090716
  Transmission Date: 20100115
  Serious: No
  Sender: FDA-Public Use
  Company Number: None

PATIENT
  Age: 65 Year
  Sex: Male
  Weight: 86.1834 kg

DRUGS (1)
  1. BACTRIM [Suspect]
     Indication: CYSTITIS
     Dosage: ONE TABLET MY MOUTH TWO TIMES A DAY
     Route: 048
     Dates: start: 20090709, end: 20090710

REACTIONS (3)
  - DECREASED APPETITE [None]
  - MIGRAINE [None]
  - TREMOR [None]
